FAERS Safety Report 8486139-2 (Version None)
Quarter: 2012Q3

REPORT INFORMATION
  Report Type: 
  Country: None (occurrence: None)
  Receive Date: 20120703
  Receipt Date: 20120618
  Transmission Date: 20120928
  Serious: Yes (Other)
  Sender: FDA-Public Use
  Company Number: US-ROCHE-1035865

PATIENT
  Sex: Female

DRUGS (4)
  1. XOLAIR [Suspect]
     Indication: PRODUCT USED FOR UNKNOWN INDICATION
     Route: 058
     Dates: start: 20060509, end: 20120126
  2. ZYRTEC [Concomitant]
     Indication: RHINITIS ALLERGIC
     Route: 048
  3. PROTONIX [Concomitant]
     Indication: GASTROOESOPHAGEAL REFLUX DISEASE
     Route: 048
  4. NAPROXEN (ALEVE) [Concomitant]
     Route: 048

REACTIONS (3)
  - DYSPHAGIA [None]
  - ANAPHYLACTOID REACTION [None]
  - HYPERSENSITIVITY [None]
